FAERS Safety Report 9254597 (Version 1)
Quarter: 2013Q2

REPORT INFORMATION
  Report Type: Spontaneous
  Country: US (occurrence: None)
  Receive Date: 20130422
  Receipt Date: 20130422
  Transmission Date: 20140414
  Serious: No
  Sender: FDA-Public Use
  Company Number: None

PATIENT
  Sex: Female

DRUGS (5)
  1. NEXAVAR 200MG BAYER [Suspect]
     Indication: THYROID CANCER
     Route: 048
     Dates: start: 20130329, end: 20130411
  2. NEXAVAR 200MG BAYER [Suspect]
     Indication: GASTROINTESTINAL CARCINOMA
     Route: 048
     Dates: start: 20130329, end: 20130411
  3. CALCIUM [Concomitant]
  4. LEVOXYL [Concomitant]
  5. OMEPRAZOLE [Concomitant]

REACTIONS (2)
  - Rash [None]
  - Blister [None]
